FAERS Safety Report 7777884-2 (Version None)
Quarter: 2011Q3

REPORT INFORMATION
  Report Type: 
  Country: None (occurrence: None)
  Receive Date: 20110926
  Receipt Date: 20110916
  Transmission Date: 20111222
  Serious: No
  Sender: FDA-Public Use
  Company Number: US-BIOGENIDEC-2011BI035875

PATIENT
  Sex: Female

DRUGS (2)
  1. GILENYA [Concomitant]
  2. TYSABRI [Suspect]
     Indication: MULTIPLE SCLEROSIS
     Route: 042
     Dates: start: 20090408, end: 20110119

REACTIONS (2)
  - SOMNOLENCE [None]
  - MEMORY IMPAIRMENT [None]
